FAERS Safety Report 16164043 (Version 1)
Quarter: 2019Q2

REPORT INFORMATION
  Report Type: Spontaneous
  Country: US (occurrence: US)
  Receive Date: 20190405
  Receipt Date: 20190405
  Transmission Date: 20190711
  Serious: No
  Sender: FDA-Public Use
  Company Number: US-BAUSCH-BL-2019-008702

PATIENT
  Sex: Female

DRUGS (1)
  1. TIMOLOL GFS [Suspect]
     Active Substance: TIMOLOL MALEATE
     Indication: GLAUCOMA
     Dosage: ABOUT A MONTH OR 2 AGO
     Route: 047
     Dates: start: 2019

REACTIONS (2)
  - Product container issue [Unknown]
  - Eye injury [Unknown]

NARRATIVE: CASE EVENT DATE: 2019
